FAERS Safety Report 6570633-5 (Version None)
Quarter: 2010Q1

REPORT INFORMATION
  Report Type: 
  Country: None (occurrence: None)
  Receive Date: 20100204
  Receipt Date: 20100122
  Transmission Date: 20100710
  Serious: Yes (Other)
  Sender: FDA-Public Use
  Company Number: ZA-PFIZER INC-2010009477

PATIENT
  Age: 63 Year
  Sex: Female

DRUGS (2)
  1. CORTEF [Suspect]
     Route: 048
  2. FLORINEF [Concomitant]
     Route: 065

REACTIONS (7)
  - ADRENOCORTICAL INSUFFICIENCY ACUTE [None]
  - BLOOD PRESSURE INCREASED [None]
  - DERMATITIS ALLERGIC [None]
  - FORMICATION [None]
  - HOT FLUSH [None]
  - HYPERSENSITIVITY [None]
  - PALPITATIONS [None]
